FAERS Safety Report 23987322 (Version 1)
Quarter: 2024Q2

REPORT INFORMATION
  Report Type: Spontaneous
  Country: US (occurrence: US)
  Receive Date: 20240618
  Receipt Date: 20240618
  Transmission Date: 20240716
  Serious: No
  Sender: FDA-Public Use
  Company Number: US-BRACCO-2024US02814

PATIENT
  Age: 66 Year
  Sex: Male

DRUGS (1)
  1. POSLUMA [Suspect]
     Active Substance: FLOTUFOLASTAT F-18
     Indication: Positron emission tomogram
     Dosage: 8.8 MCI, SINGLE
     Route: 042
     Dates: start: 20240326, end: 20240326

REACTIONS (1)
  - Positron emission tomogram abnormal [Unknown]

NARRATIVE: CASE EVENT DATE: 20240326
